FAERS Safety Report 25762285 (Version 1)
Quarter: 2025Q3

REPORT INFORMATION
  Report Type: Spontaneous
  Country: EU (occurrence: EU)
  Receive Date: 20250904
  Receipt Date: 20250904
  Transmission Date: 20251020
  Serious: Yes (Other)
  Sender: ELI LILLY AND COMPANY
  Company Number: EU-ELI_LILLY_AND_COMPANY-SE202509001052

PATIENT
  Age: 65 Year
  Sex: Female

DRUGS (1)
  1. TERIPARATIDE [Suspect]
     Active Substance: TERIPARATIDE
     Indication: Multiple fractures
     Dosage: 20 UG, DAILY
     Route: 065

REACTIONS (4)
  - Chronic kidney disease [Unknown]
  - Hyperphosphataemia [Unknown]
  - Hypercalcaemia [Unknown]
  - Drug ineffective [Unknown]
